FAERS Safety Report 16675739 (Version 2)
Quarter: 2019Q3

REPORT INFORMATION
  Report Type: Spontaneous
  Country: US (occurrence: US)
  Receive Date: 20190806
  Receipt Date: 20190916
  Transmission Date: 20191004
  Serious: No
  Sender: FDA-Public Use
  Company Number: US-AMGEN INC.-USASP2019123574

PATIENT
  Age: 26 Year
  Sex: Female
  Weight: 69.3 kg

DRUGS (1)
  1. AIMOVIG [Suspect]
     Active Substance: ERENUMAB-AOOE
     Indication: MIGRAINE
     Dosage: 70 MILLIGRAM, QMO
     Route: 065
     Dates: start: 20190727

REACTIONS (2)
  - Feeling abnormal [Recovered/Resolved]
  - Injection site paraesthesia [Unknown]

NARRATIVE: CASE EVENT DATE: 20190727
